FAERS Safety Report 5262268-1 (Version None)
Quarter: 2007Q1

REPORT INFORMATION
  Report Type: 
  Country: None (occurrence: None)
  Receive Date: 20070312
  Receipt Date: 20070306
  Transmission Date: 20070707
  Serious: Yes (Hospitalization)
  Sender: FDA-Public Use
  Company Number: US-BAYER-200710314BWH

PATIENT
  Age: 79 Year
  Sex: Male

DRUGS (6)
  1. NEXAVAR [Suspect]
     Indication: METASTATIC RENAL CELL CARCINOMA
     Dosage: TOTAL DAILY DOSE: 800 MG  UNIT DOSE: 200 MG
     Route: 048
     Dates: start: 20061201, end: 20070101
  2. COLACE [Concomitant]
  3. METOPROLOL SUCCINATE [Concomitant]
     Route: 048
  4. FUROSEMIDE [Concomitant]
     Route: 048
  5. GLIPIZIDE [Concomitant]
     Route: 048
  6. PROTONIX [Concomitant]

REACTIONS (8)
  - ANAEMIA [None]
  - BLOOD POTASSIUM INCREASED [None]
  - COUGH [None]
  - DEHYDRATION [None]
  - HYPERTENSION [None]
  - POSTNASAL DRIP [None]
  - PYREXIA [None]
  - RENAL FAILURE ACUTE [None]
